FAERS Safety Report 20290959 (Version 1)
Quarter: 2022Q1

REPORT INFORMATION
  Report Type: Spontaneous
  Country: US (occurrence: None)
  Receive Date: 20220103
  Receipt Date: 20220103
  Transmission Date: 20220423
  Serious: Yes (Life-Threatening, Hospitalization, Disabling)
  Sender: FDA-Public Use
  Company Number: None

PATIENT

DRUGS (2)
  1. TRAMADOL [Suspect]
     Active Substance: TRAMADOL
     Indication: Pelvic pain
  2. TRAMADOL [Suspect]
     Active Substance: TRAMADOL
     Indication: Pelvic fracture

REACTIONS (3)
  - Seizure [None]
  - Injury [None]
  - Fall [None]
